FAERS Safety Report 4617702-4 (Version None)
Quarter: 2005Q1

REPORT INFORMATION
  Report Type: 
  Country: None (occurrence: None)
  Receive Date: 20050322
  Receipt Date: 20050308
  Transmission Date: 20050727
  Serious: Yes (Other)
  Sender: FDA-Public Use
  Company Number: 2005BI005075

PATIENT
  Age: 25 Year
  Sex: Male

DRUGS (5)
  1. ZEVALIN [Suspect]
     Indication: NON-HODGKIN'S LYMPHOMA
     Dosage: IV
     Route: 042
     Dates: start: 20041001, end: 20041001
  2. ZEVALIN [Suspect]
     Indication: NON-HODGKIN'S LYMPHOMA
     Dosage: IV
     Route: 042
     Dates: start: 20041001, end: 20041001
  3. ZEVALIN [Suspect]
     Indication: NON-HODGKIN'S LYMPHOMA
     Dosage: IV
     Route: 042
     Dates: start: 20041001, end: 20041001
  4. ZEVALIN [Suspect]
  5. ZEVALIN [Suspect]

REACTIONS (5)
  - ANAEMIA [None]
  - ARTHRALGIA [None]
  - THROMBOCYTOPENIA [None]
  - THROMBOPHLEBITIS [None]
  - VASCULITIS [None]
